FAERS Safety Report 7987596-8 (Version None)
Quarter: 2011Q4

REPORT INFORMATION
  Report Type: 
  Country: None (occurrence: None)
  Receive Date: 20111216
  Receipt Date: 20110420
  Transmission Date: 20120403
  Serious: No
  Sender: FDA-Public Use
  Company Number: US-BRISTOL-MYERS SQUIBB COMPANY-15687635

PATIENT
  Age: 41 Year
  Sex: Male

DRUGS (4)
  1. PROZAC [Concomitant]
  2. SIMVASTATIN [Concomitant]
  3. ABILIFY [Suspect]
     Dates: end: 20110227
  4. SYNTHROID [Concomitant]

REACTIONS (1)
  - BOWEL MOVEMENT IRREGULARITY [None]
